FAERS Safety Report 9704310 (Version 2)
Quarter: 2014Q1

REPORT INFORMATION
  Report Type: Report from Study
  Country: DE (occurrence: DE)
  Receive Date: 20131122
  Receipt Date: 20140130
  Transmission Date: 20141002
  Serious: Yes (Other)
  Sender: FDA-Public Use
  Company Number: DE-INCYTE CORPORATION-2013IN002751

PATIENT
  Sex: Female
  Weight: 92 kg

DRUGS (10)
  1. INCB018424 [Suspect]
     Indication: MYELOFIBROSIS
     Dosage: 20 MG, PER DAY
     Route: 048
     Dates: start: 20130419
  2. INCB018424 [Suspect]
     Dosage: 10 MG, PER DAY
     Route: 048
     Dates: start: 20130502, end: 20130516
  3. INCB018424 [Suspect]
     Dosage: 30 MG, PER DAY
     Route: 048
     Dates: start: 20130620
  4. ALDACTONE                          /00006201/ [Concomitant]
  5. PLAVIX [Concomitant]
  6. FUROSEMIDE [Concomitant]
  7. PROCORALAN [Concomitant]
  8. CORVATON FORTE [Concomitant]
  9. OMEGA 3                            /01334101/ [Concomitant]
  10. METOPROLOL [Concomitant]

REACTIONS (2)
  - Angina pectoris [Recovering/Resolving]
  - Depression [Unknown]
